FAERS Safety Report 8460429 (Version 6)
Quarter: 2013Q2

REPORT INFORMATION
  Report Type: Spontaneous
  Country: US (occurrence: US)
  Receive Date: 20120315
  Receipt Date: 20130506
  Transmission Date: 20140414
  Serious: Yes (Other)
  Sender: FDA-Public Use
  Company Number: US-PFIZER INC-2012065510

PATIENT
  Age: 81 Year
  Sex: Female
  Weight: 63.49 kg

DRUGS (1)
  1. NEURONTIN [Suspect]
     Indication: CONVULSION
     Dosage: 300 MG, 3X/DAY
     Route: 048

REACTIONS (14)
  - Convulsion [Unknown]
  - Lower limb fracture [Unknown]
  - Impaired driving ability [Unknown]
  - Thyroid disorder [Unknown]
  - Chest pain [Unknown]
  - Malaise [Unknown]
  - Agitation [Unknown]
  - Local swelling [Unknown]
  - Nervousness [Unknown]
  - Skin lesion [Unknown]
  - Skin irritation [Unknown]
  - Acne [Unknown]
  - Fear [Unknown]
  - Intentional drug misuse [Unknown]
